FAERS Safety Report 4414374-9 (Version None)
Quarter: 2004Q2

REPORT INFORMATION
  Report Type: 
  Country: None (occurrence: None)
  Receive Date: 20040630
  Receipt Date: 20040413
  Transmission Date: 20050107
  Serious: No
  Sender: FDA-Public Use
  Company Number: 03P-163-0245942-00

PATIENT
  Age: 80 Year
  Sex: Female

DRUGS (14)
  1. HUMIRA [Suspect]
     Indication: RHEUMATOID ARTHRITIS
     Dosage: 40 MG, 1 IN 2 WK, SUBCUTANEOUS
     Route: 058
     Dates: start: 20030912, end: 20031201
  2. HYDROXYZINE [Concomitant]
  3. LIBARX [Concomitant]
  4. POTASSIUM [Concomitant]
  5. ATENOLOL [Concomitant]
  6. FUROSEMIDE [Concomitant]
  7. CLOPIDOGREL BISULFATE [Concomitant]
  8. ACETYLSLICYLIC ACID [Concomitant]
  9. PRAVASTATIN SODIUM [Concomitant]
  10. MECLIZINE [Concomitant]
  11. FOLIC ACID [Concomitant]
  12. CALCIUM [Concomitant]
  13. OMEPRAZOLE [Concomitant]
  14. CYANOCOBALAMIN [Concomitant]

REACTIONS (2)
  - RASH [None]
  - RASH GENERALISED [None]
